FAERS Safety Report 12383756 (Version 2)
Quarter: 2016Q2

REPORT INFORMATION
  Report Type: Spontaneous
  Country: SE (occurrence: SE)
  Receive Date: 20160519
  Receipt Date: 20160620
  Transmission Date: 20160815
  Serious: Yes (Hospitalization, Other)
  Sender: FDA-Public Use
  Company Number: SE-CIPLA LTD.-2016SE04911

PATIENT

DRUGS (9)
  1. REMIFENATANIL [Suspect]
     Active Substance: REMIFENTANIL HYDROCHLORIDE
     Indication: GENERAL ANAESTHESIA
     Dosage: 0.5 ?G/KG/MIN GIVEN FOR 45 S
  2. DALTEPARIN [Suspect]
     Active Substance: DALTEPARIN
     Dosage: 12500 U, BID
     Route: 058
  3. ACETYLSALICYLIC ACID [Suspect]
     Active Substance: ASPIRIN
     Indication: ANTICOAGULANT THERAPY
     Dosage: 75 MG, UNK
     Route: 065
  4. WARFARIN [Suspect]
     Active Substance: WARFARIN
     Indication: ANTICOAGULANT THERAPY
     Dosage: UNK
     Route: 065
  5. SUCCINYLCHOLINE [Suspect]
     Active Substance: SUCCINYLCHOLINE
     Indication: GENERAL ANAESTHESIA
     Dosage: 100 ?G, UNK
     Route: 065
  6. THIOPENTAL [Suspect]
     Active Substance: THIOPENTAL
     Indication: GENERAL ANAESTHESIA
     Dosage: 500 MG, UNK
     Route: 065
  7. DALTEPARIN [Suspect]
     Active Substance: DALTEPARIN
     Indication: ANTICOAGULANT THERAPY
     Dosage: UNK
     Route: 065
  8. REMIFENATANIL [Suspect]
     Active Substance: REMIFENTANIL HYDROCHLORIDE
     Dosage: UNK, MAINTENANCE
  9. SEVOFLURANE. [Suspect]
     Active Substance: SEVOFLURANE
     Indication: GENERAL ANAESTHESIA
     Dosage: UNK, MAINTENANCE
     Route: 065

REACTIONS (6)
  - Metabolic acidosis [Unknown]
  - Hypotension [Unknown]
  - Hypoxia [Unknown]
  - Premature delivery [Unknown]
  - Pulmonary oedema [Unknown]
  - Exposure during pregnancy [Unknown]
